FAERS Safety Report 24461955 (Version 4)
Quarter: 2024Q4

REPORT INFORMATION
  Report Type: Report from Study
  Country: CA (occurrence: CA)
  Receive Date: 20241018
  Receipt Date: 20241231
  Transmission Date: 20250115
  Serious: Yes (Hospitalization, Other)
  Sender: TAKEDA
  Company Number: CA-TAKEDA-2024TUS103650

PATIENT
  Age: 54 Year
  Sex: Male

DRUGS (20)
  1. VEDOLIZUMAB [Suspect]
     Active Substance: VEDOLIZUMAB
     Indication: Colitis ulcerative
     Dosage: 300 MILLIGRAM
  2. VEDOLIZUMAB [Suspect]
     Active Substance: VEDOLIZUMAB
     Dosage: 300 MILLIGRAM, Q4WEEKS
     Dates: start: 20231218
  3. VEDOLIZUMAB [Suspect]
     Active Substance: VEDOLIZUMAB
     Dosage: 300 MILLIGRAM, Q4WEEKS
  4. MORPHINE [Suspect]
     Active Substance: MORPHINE
     Indication: Product used for unknown indication
     Dosage: UNK
  5. MESALAMINE [Concomitant]
     Active Substance: MESALAMINE
     Dosage: 4.8 GRAM
  6. SEROQUEL [Concomitant]
     Active Substance: QUETIAPINE FUMARATE
     Dosage: UNK
  7. TYLENOL [Concomitant]
     Active Substance: ACETAMINOPHEN
     Indication: Arthralgia
     Dosage: UNK
  8. TYLENOL [Concomitant]
     Active Substance: ACETAMINOPHEN
     Indication: Pain in extremity
  9. CELEBREX [Concomitant]
     Active Substance: CELECOXIB
     Indication: Arthralgia
     Dosage: UNK
  10. CELEBREX [Concomitant]
     Active Substance: CELECOXIB
     Indication: Pain in extremity
  11. DIVALPROEX SODIUM [Concomitant]
     Active Substance: DIVALPROEX SODIUM
     Indication: Epilepsy
     Dosage: UNK
  12. DIVALPROEX SODIUM [Concomitant]
     Active Substance: DIVALPROEX SODIUM
     Indication: Bipolar disorder
  13. TRAZODONE [Concomitant]
     Active Substance: TRAZODONE HYDROCHLORIDE
     Indication: Depression
     Dosage: UNK
  14. ALBUTEROL [Concomitant]
     Active Substance: ALBUTEROL
     Dosage: UNK
  15. GLICLAZIDE [Concomitant]
     Active Substance: GLICLAZIDE
     Indication: Diabetes mellitus
     Dosage: UNK
  16. ASPIRIN [Concomitant]
     Active Substance: ASPIRIN
     Dosage: 80 MILLIGRAM
  17. TAMSULOSIN [Concomitant]
     Active Substance: TAMSULOSIN
     Indication: Benign prostatic hyperplasia
     Dosage: UNK
  18. PANTOPRAZOLE [Concomitant]
     Active Substance: PANTOPRAZOLE
     Dosage: UNK
  19. ATORVASTATIN [Concomitant]
     Active Substance: ATORVASTATIN
     Dosage: UNK
  20. VITAMIN D [Concomitant]
     Active Substance: VITAMIN D NOS
     Dosage: UNK

REACTIONS (16)
  - Psychotic disorder [Unknown]
  - Colitis ulcerative [Recovering/Resolving]
  - Suicidal ideation [Unknown]
  - Clavicle fracture [Recovered/Resolved]
  - Shoulder fracture [Recovered/Resolved]
  - Off label use [Unknown]
  - Product dose omission issue [Unknown]
  - Road traffic accident [Recovered/Resolved]
  - Gout [Unknown]
  - Fall [Unknown]
  - Blood pressure decreased [Unknown]
  - Skin laceration [Recovered/Resolved]
  - Infection [Recovered/Resolved]
  - Arthralgia [Unknown]
  - Vomiting [Recovered/Resolved]
  - Pain in extremity [Unknown]

NARRATIVE: CASE EVENT DATE: 20231218
